FAERS Safety Report 12866504 (Version 2)
Quarter: 2017Q3

REPORT INFORMATION
  Report Type: Spontaneous
  Country: US (occurrence: US)
  Receive Date: 20161020
  Receipt Date: 20170928
  Transmission Date: 20171127
  Serious: No
  Sender: FDA-Public Use
  Company Number: US-SA-2016SA111097

PATIENT
  Age: 59 Year
  Sex: Female

DRUGS (4)
  1. XANAX [Concomitant]
     Active Substance: ALPRAZOLAM
  2. AUBAGIO [Suspect]
     Active Substance: TERIFLUNOMIDE
     Indication: MULTIPLE SCLEROSIS
     Route: 048
     Dates: start: 20160505
  3. CALCIUM [Concomitant]
     Active Substance: CALCIUM
  4. AVONEX [Concomitant]
     Active Substance: INTERFERON BETA-1A

REACTIONS (3)
  - Insomnia [Unknown]
  - Pain in extremity [Unknown]
  - Vaginal haemorrhage [Unknown]

NARRATIVE: CASE EVENT DATE: 20170327
